FAERS Safety Report 5088494-2 (Version None)
Quarter: 2006Q3

REPORT INFORMATION
  Report Type: 
  Country: None (occurrence: None)
  Receive Date: 20060822
  Receipt Date: 20060809
  Transmission Date: 20061208
  Serious: Yes (Death)
  Sender: FDA-Public Use
  Company Number: 2006091565

PATIENT
  Age: 46 Year
  Sex: Male
  Weight: 55 kg

DRUGS (8)
  1. ZYVOX [Suspect]
     Indication: STAPHYLOCOCCAL INFECTION
     Dosage: 600 MG, INTRAVENOUS
     Route: 042
     Dates: start: 20060721, end: 20060721
  2. VANCOMYCIN HYDROCHLORIDE [Concomitant]
  3. LANSOPRAZOLE [Concomitant]
  4. ALL OTHER THERAPEUTIC PRODUCTS [Concomitant]
  5. TORSEMIDE [Concomitant]
  6. URSO (UROSDEOXYCHOLIC ACID) [Concomitant]
  7. PLASMA [Concomitant]
  8. RED BLOOD CELLS [Concomitant]

REACTIONS (6)
  - ANGIOPATHY [None]
  - DRUG INEFFECTIVE [None]
  - OESOPHAGEAL VARICES HAEMORRHAGE [None]
  - PHLEBITIS [None]
  - PYREXIA [None]
  - SHOCK HAEMORRHAGIC [None]
